FAERS Safety Report 17424169 (Version 2)
Quarter: 2020Q1

REPORT INFORMATION
  Report Type: Spontaneous
  Country: JP (occurrence: JP)
  Receive Date: 20200217
  Receipt Date: 20200319
  Transmission Date: 20200409
  Serious: Yes (Death)
  Sender: FDA-Public Use
  Company Number: JP-DSJP-DSJ-2020-105069AA

PATIENT

DRUGS (3)
  1. OLMETEC OD [Suspect]
     Active Substance: OLMESARTAN MEDOXOMIL
     Indication: ESSENTIAL HYPERTENSION
     Dosage: 40MG/DAY
     Route: 065
  2. THIAZIDE DERIVATIVES AND PREPARATIONS [Suspect]
     Active Substance: UNSPECIFIED INGREDIENT
     Indication: ESSENTIAL HYPERTENSION
     Dosage: 0.5MG/DAY
     Route: 065
  3. THIAZIDE DERIVATIVES AND PREPARATIONS [Suspect]
     Active Substance: UNSPECIFIED INGREDIENT
     Dosage: 1MG/DAY
     Route: 065

REACTIONS (1)
  - Cardiac arrest [Fatal]
